FAERS Safety Report 12254793 (Version 2)
Quarter: 2016Q2

REPORT INFORMATION
  Report Type: Report from Study
  Country: CA (occurrence: CA)
  Receive Date: 20160411
  Receipt Date: 20160526
  Transmission Date: 20160815
  Serious: Yes (Other)
  Sender: FDA-Public Use
  Company Number: CA-ABBVIE-15P-028-1511806-00

PATIENT
  Age: 29 Year
  Sex: Female
  Weight: 97.61 kg

DRUGS (7)
  1. LUPRON DEPOT [Suspect]
     Active Substance: LEUPROLIDE ACETATE
     Route: 030
     Dates: start: 20151124
  2. TOPAMAX [Suspect]
     Active Substance: TOPIRAMATE
     Indication: MIGRAINE
     Route: 065
  3. MEDOPRAZOLE [Concomitant]
     Indication: PRODUCT USED FOR UNKNOWN INDICATION
  4. HYDROXYZINE [Concomitant]
     Active Substance: HYDROXYZINE\HYDROXYZINE HYDROCHLORIDE
     Indication: PRODUCT USED FOR UNKNOWN INDICATION
  5. LUPRON DEPOT [Suspect]
     Active Substance: LEUPROLIDE ACETATE
     Indication: ENDOMETRIOSIS
     Route: 030
     Dates: start: 20140527, end: 20150831
  6. OXYCODONE [Concomitant]
     Active Substance: OXYCODONE
     Indication: PRODUCT USED FOR UNKNOWN INDICATION
  7. ESTRACE [Concomitant]
     Active Substance: ESTRADIOL
     Indication: PRODUCT USED FOR UNKNOWN INDICATION

REACTIONS (15)
  - Endometriosis [Unknown]
  - Endometriosis [Unknown]
  - Visual impairment [Not Recovered/Not Resolved]
  - Pelvic pain [Not Recovered/Not Resolved]
  - Haemorrhage [Unknown]
  - Pain [Not Recovered/Not Resolved]
  - Retinal detachment [Unknown]
  - Endometrial ablation [Unknown]
  - Weight increased [Unknown]
  - Visual impairment [Unknown]
  - Endometriosis [Not Recovered/Not Resolved]
  - Anxiety [Not Recovered/Not Resolved]
  - Salpingo-oophorectomy unilateral [Unknown]
  - Menstrual disorder [Recovered/Resolved]
  - Malaise [Not Recovered/Not Resolved]

NARRATIVE: CASE EVENT DATE: 2015
